FAERS Safety Report 20622070 (Version 1)
Quarter: 2022Q1

REPORT INFORMATION
  Report Type: Spontaneous
  Country: US (occurrence: None)
  Receive Date: 20220321
  Receipt Date: 20220321
  Transmission Date: 20220423
  Serious: Yes (Life-Threatening, Disabling, Other)
  Sender: FDA-Public Use
  Company Number: None

PATIENT
  Age: 42 Year
  Sex: Male
  Weight: 91.35 kg

DRUGS (7)
  1. DAPAGLIFLOZIN [Suspect]
     Active Substance: DAPAGLIFLOZIN
     Route: 048
     Dates: start: 20110611, end: 20110611
  2. BACLOFEN [Concomitant]
     Active Substance: BACLOFEN
  3. Magnisium oxide [Concomitant]
  4. Amlodipine be as [Concomitant]
  5. NURTEC ODT [Concomitant]
     Active Substance: RIMEGEPANT SULFATE
  6. EXT [Concomitant]
  7. VITAMIN D3 [Concomitant]
     Active Substance: CHOLECALCIFEROL

REACTIONS (9)
  - Feeling abnormal [None]
  - Penile pain [None]
  - Dysuria [None]
  - Anorectal discomfort [None]
  - Anal pruritus [None]
  - Haematochezia [None]
  - Abdominal discomfort [None]
  - Frustration tolerance decreased [None]
  - Misleading laboratory test result [None]
